FAERS Safety Report 6035289-9 (Version None)
Quarter: 2009Q1

REPORT INFORMATION
  Report Type: 
  Country: None (occurrence: None)
  Receive Date: 20090109
  Receipt Date: 20081229
  Transmission Date: 20090719
  Serious: Yes (Hospitalization, Other)
  Sender: FDA-Public Use
  Company Number: IMP_03976_2008

PATIENT
  Sex: Female
  Weight: 52.1637 kg

DRUGS (1)
  1. BUDEPRION (NOT SPECIFIED) [Suspect]
     Indication: DEPRESSION
     Dosage: 300-450 MG PER DAY ORAL, 450 MG QD
     Route: 048
     Dates: start: 20070701, end: 20080801

REACTIONS (8)
  - ABNORMAL BEHAVIOUR [None]
  - ANXIETY [None]
  - CRYING [None]
  - DRUG INEFFECTIVE [None]
  - INSOMNIA [None]
  - POSTPARTUM DEPRESSION [None]
  - SUICIDAL IDEATION [None]
  - THERAPEUTIC RESPONSE UNEXPECTED WITH DRUG SUBSTITUTION [None]
